FAERS Safety Report 6147890-2 (Version None)
Quarter: 2009Q2

REPORT INFORMATION
  Report Type: 
  Country: None (occurrence: None)
  Receive Date: 20090402
  Receipt Date: 20081204
  Transmission Date: 20091009
  Serious: No
  Sender: FDA-Public Use
  Company Number: 1000004116

PATIENT
  Age: 71 Year
  Sex: Female
  Weight: 99.79 kg

DRUGS (14)
  1. BYSTOLIC [Suspect]
     Indication: VENTRICULAR TACHYCARDIA
     Dosage: 5 MG (5 MG, 1 N 1 D), ORAL
     Route: 048
     Dates: start: 20080401, end: 20080707
  2. VIBRAMYCIN [Concomitant]
  3. GLYBURIDE [Concomitant]
  4. PEPCID [Concomitant]
  5. ADVAIR (SALMETEROL XINAFOATE, FLUTICASONE PROPIONATE) (SALMETEROL XINA [Concomitant]
  6. XOPENEX (LEVOSALBUTAMOL) (LEVOSALBUTAMOL) [Concomitant]
  7. ZYRTEC [Concomitant]
  8. DIGOXIN [Concomitant]
  9. COUMADIN [Concomitant]
  10. SINGULAIR [Concomitant]
  11. ASA (ACETYLSALICYLIC ACID) (ACETYLSALICYLIC ACID) [Concomitant]
  12. DYRENIUM (TRIAMTERENE) (TRIAMTERENE) [Concomitant]
  13. ANTARA (FENOFIBRATE) (FENOFIBRATE) [Concomitant]
  14. ALIGN [Concomitant]

REACTIONS (3)
  - BURNING SENSATION [None]
  - MUSCLE SPASMS [None]
  - SKIN EXFOLIATION [None]
